FAERS Safety Report 6856289-2 (Version None)
Quarter: 2010Q3

REPORT INFORMATION
  Report Type: 
  Country: None (occurrence: None)
  Receive Date: 20100719
  Receipt Date: 20100713
  Transmission Date: 20110219
  Serious: Yes (Death)
  Sender: FDA-Public Use
  Company Number: PHHY2010BR10034

PATIENT
  Sex: Male

DRUGS (2)
  1. STALEVO 100 [Suspect]
     Dosage: 200/100/25 MG DAILY
  2. STALEVO 100 [Suspect]
     Dosage: 200/150/37.5 MG DAILY

REACTIONS (1)
  - DEATH [None]
